FAERS Safety Report 7766973-4 (Version None)
Quarter: 2011Q3

REPORT INFORMATION
  Report Type: 
  Country: None (occurrence: None)
  Receive Date: 20110922
  Receipt Date: 20110919
  Transmission Date: 20111222
  Serious: No
  Sender: FDA-Public Use
  Company Number: PHEH2011US04475

PATIENT
  Sex: Female

DRUGS (8)
  1. MULTI-VITAMINS [Concomitant]
  2. HYDROCHLOROTHIAZIDE [Concomitant]
  3. VITAMIN D [Concomitant]
  4. OPTIVE LUBRICANT EYE DROPS [Concomitant]
     Indication: DIZZINESS
  5. SYNTHROID [Concomitant]
  6. OMEPRAZOLE [Concomitant]
  7. TASIGNA [Suspect]
     Dosage: 300 MG, BID
     Route: 048
  8. FISH OIL [Concomitant]

REACTIONS (2)
  - ABDOMINAL DISCOMFORT [None]
  - ALOPECIA [None]
